FAERS Safety Report 17315021 (Version 1)
Quarter: 2020Q1

REPORT INFORMATION
  Report Type: Spontaneous
  Country: BR (occurrence: BR)
  Receive Date: 20200124
  Receipt Date: 20200124
  Transmission Date: 20200409
  Serious: Yes (Other)
  Sender: FDA-Public Use
  Company Number: NVSC2020BR015380

PATIENT
  Sex: Female

DRUGS (2)
  1. CAPTOPRIL. [Suspect]
     Active Substance: CAPTOPRIL
     Indication: HYPERTENSION
     Dosage: UNK
     Route: 065
  2. CAPTOPRIL. [Suspect]
     Active Substance: CAPTOPRIL
     Indication: INTRACRANIAL PRESSURE INCREASED

REACTIONS (6)
  - Intracranial pressure increased [Unknown]
  - Crying [Unknown]
  - Blood pressure abnormal [Unknown]
  - Incorrect route of product administration [Unknown]
  - Feeling of despair [Unknown]
  - Coma [Unknown]
